FAERS Safety Report 4771967-7 (Version None)
Quarter: 2005Q3

REPORT INFORMATION
  Report Type: 
  Country: None (occurrence: None)
  Receive Date: 20050916
  Receipt Date: 20030813
  Transmission Date: 20060218
  Serious: Yes (Hospitalization)
  Sender: FDA-Public Use
  Company Number: PHNR2003AU01214

PATIENT
  Sex: Female

DRUGS (2)
  1. CLOZARIL [Suspect]
     Dosage: 25 - 750 MG/DAY
     Route: 048
     Dates: start: 19980902, end: 20030501
  2. CLOZARIL [Suspect]
     Dosage: 400 - 600 MG/DAY
     Route: 048
     Dates: start: 20030501

REACTIONS (5)
  - CONVULSION [None]
  - DRUG LEVEL INCREASED [None]
  - PNEUMONIA [None]
  - PNEUMONIA PNEUMOCOCCAL [None]
  - RENAL FAILURE [None]
